FAERS Safety Report 19796808 (Version 2)
Quarter: 2021Q4

REPORT INFORMATION
  Report Type: Spontaneous
  Country: JP (occurrence: JP)
  Receive Date: 20210907
  Receipt Date: 20211102
  Transmission Date: 20220303
  Serious: Yes (Hospitalization, Other)
  Sender: FDA-Public Use
  Company Number: JP-NBI-S202100239BIPI

PATIENT
  Age: 75 Year
  Sex: Female

DRUGS (2)
  1. OFEV [Suspect]
     Active Substance: NINTEDANIB
     Indication: Idiopathic interstitial pneumonia
     Route: 048
  2. PREDONINE [Concomitant]
     Active Substance: PREDNISOLONE
     Indication: Idiopathic interstitial pneumonia
     Route: 048

REACTIONS (3)
  - Pneumothorax [Recovered/Resolved]
  - Stress cardiomyopathy [Unknown]
  - Cardiogenic shock [Recovered/Resolved]
